FAERS Safety Report 14354247 (Version 1)
Quarter: 2018Q1

REPORT INFORMATION
  Report Type: Spontaneous
  Country: FR (occurrence: FR)
  Receive Date: 20180105
  Receipt Date: 20180105
  Transmission Date: 20180509
  Serious: Yes (Death)
  Sender: FDA-Public Use
  Company Number: FR-SUN PHARMACEUTICAL INDUSTRIES LTD-2017RR-158961

PATIENT
  Age: 73 Year
  Sex: Female

DRUGS (4)
  1. MIRTAZAPINE. [Suspect]
     Active Substance: MIRTAZAPINE
     Indication: BIPOLAR DISORDER
     Dosage: 45 MG, QD
     Route: 048
     Dates: end: 20171208
  2. TIAPRIDAL [Suspect]
     Active Substance: TIAPRIDE HYDROCHLORIDE
     Indication: BIPOLAR DISORDER
     Dosage: 100 MG, QD
     Route: 048
     Dates: end: 20171207
  3. ESCITALOPRAM [Suspect]
     Active Substance: ESCITALOPRAM OXALATE
     Indication: BIPOLAR DISORDER
     Dosage: 30 MG, QD
     Route: 048
     Dates: end: 20171208
  4. OROZAMUDOL [Suspect]
     Active Substance: TRAMADOL
     Indication: PAIN
     Dosage: 150 MG, QD
     Route: 048
     Dates: start: 20171130, end: 20171208

REACTIONS (5)
  - Hyperhidrosis [Fatal]
  - Chills [Fatal]
  - Hyperthermia [Fatal]
  - Dyspnoea [Fatal]
  - Hypertonia [Fatal]

NARRATIVE: CASE EVENT DATE: 20171202
